FAERS Safety Report 10920122 (Version 3)
Quarter: 2015Q2

REPORT INFORMATION
  Report Type: Spontaneous
  Country: US (occurrence: US)
  Receive Date: 20150317
  Receipt Date: 20150515
  Transmission Date: 20150821
  Serious: No
  Sender: FDA-Public Use
  Company Number: US-009507513-1502USA010349

PATIENT

DRUGS (1)
  1. TICE BCG [Suspect]
     Active Substance: BACILLUS CALMETTE-GUERIN SUBSTRAIN TICE LIVE ANTIGEN
     Dosage: 50 MG, UNK
     Route: 030

REACTIONS (3)
  - Bovine tuberculosis [Unknown]
  - Incorrect route of drug administration [Unknown]
  - Medication error [Unknown]
